FAERS Safety Report 7039867-X (Version None)
Quarter: 2010Q4

REPORT INFORMATION
  Report Type: 
  Country: None (occurrence: None)
  Receive Date: 20101012
  Receipt Date: 20101011
  Transmission Date: 20110411
  Serious: Yes (Death)
  Sender: FDA-Public Use
  Company Number: KR-EISAI INC.-E2020-07673-SPO-KR

PATIENT
  Age: 80 Year
  Sex: Male

DRUGS (4)
  1. ARICEPT [Suspect]
     Route: 048
     Dates: start: 20100910
  2. CLOPIDOGREL [Concomitant]
     Indication: THROMBOSIS
     Dosage: 75 MG DAILY
     Route: 048
     Dates: start: 20100910
  3. URSODESOXYCHOLIC ACID [Concomitant]
     Dosage: 300 MG DAILY
     Route: 048
     Dates: start: 20100910
  4. BIPHENYL DIMETHYL DICARBOXYLATE [Concomitant]
     Dosage: 9 MG DAILY
     Route: 048
     Dates: start: 20100910

REACTIONS (1)
  - GALLBLADDER CANCER [None]
